FAERS Safety Report 10445337 (Version 2)
Quarter: 2014Q4

REPORT INFORMATION
  Report Type: Spontaneous
  Country: AU (occurrence: AU)
  Receive Date: 20140910
  Receipt Date: 20141017
  Transmission Date: 20150528
  Serious: Yes (Death, Hospitalization)
  Sender: FDA-Public Use
  Company Number: AU-JNJFOC-20140900504

PATIENT
  Sex: Male

DRUGS (1)
  1. ZYTIGA [Suspect]
     Active Substance: ABIRATERONE ACETATE
     Indication: PROSTATE CANCER
     Route: 048

REACTIONS (6)
  - Bone marrow tumour cell infiltration [Unknown]
  - Hip fracture [Unknown]
  - Blood potassium decreased [Unknown]
  - Prostate cancer [Fatal]
  - Femur fracture [Unknown]
  - Fall [Unknown]
